FAERS Safety Report 15943102 (Version 2)
Quarter: 2019Q1

REPORT INFORMATION
  Report Type: Spontaneous
  Country: IT (occurrence: IT)
  Receive Date: 20190210
  Receipt Date: 20190303
  Transmission Date: 20190417
  Serious: Yes (Death)
  Sender: FDA-Public Use
  Company Number: PHHY2019IT030596

PATIENT
  Age: 84 Year
  Sex: Female

DRUGS (1)
  1. CEFTRIAXONE. [Suspect]
     Active Substance: CEFTRIAXONE
     Indication: BRONCHITIS
     Dosage: 1 G, QD
     Route: 030
     Dates: start: 20190130

REACTIONS (1)
  - Anaphylactic shock [Fatal]

NARRATIVE: CASE EVENT DATE: 20190130
